FAERS Safety Report 7192011-0 (Version None)
Quarter: 2010Q4

REPORT INFORMATION
  Report Type: 
  Country: None (occurrence: None)
  Receive Date: 20101223
  Receipt Date: 20101221
  Transmission Date: 20110411
  Serious: Yes (Death, Hospitalization)
  Sender: FDA-Public Use
  Company Number: PHHY2010CA38073

PATIENT
  Sex: Male

DRUGS (1)
  1. SANDOSTATIN LAR [Suspect]
     Indication: DIARRHOEA
     Dosage: 20 MG, EVERY 4 WEEKS
     Route: 030
     Dates: start: 20100319

REACTIONS (6)
  - ABDOMINAL INFECTION [None]
  - ABDOMINAL MASS [None]
  - HAEMORRHAGE [None]
  - PALLIATIVE CARE [None]
  - SURGERY [None]
  - TRANSFUSION [None]
